FAERS Safety Report 23479188 (Version 3)
Quarter: 2024Q2

REPORT INFORMATION
  Report Type: Spontaneous
  Country: US (occurrence: US)
  Receive Date: 20240205
  Receipt Date: 20240422
  Transmission Date: 20240716
  Serious: Yes (Other)
  Sender: FDA-Public Use
  Company Number: US-BRISTOL-MYERS SQUIBB COMPANY-2024-018150

PATIENT
  Age: 67 Year
  Sex: Female

DRUGS (1)
  1. LENALIDOMIDE [Suspect]
     Active Substance: LENALIDOMIDE
     Indication: Plasma cell myeloma
     Dosage: TAKE 1 CAPSULE (10MG) BY MOUTH EVERY DAY FOR 21 DAYS ON, THEN 7 DAYS OFF. REPEAT EVERY 28 DAYS
     Route: 048

REACTIONS (6)
  - Pruritus [Recovering/Resolving]
  - COVID-19 [Recovered/Resolved]
  - Treatment noncompliance [Unknown]
  - Atrial fibrillation [Unknown]
  - Sinusitis [Unknown]
  - Cough [Recovering/Resolving]
